FAERS Safety Report 7483028-7 (Version None)
Quarter: 2011Q2

REPORT INFORMATION
  Report Type: 
  Country: None (occurrence: None)
  Receive Date: 20110516
  Receipt Date: 20110406
  Transmission Date: 20111010
  Serious: Yes (Other)
  Sender: FDA-Public Use
  Company Number: US-BAYER-201039822NA

PATIENT
  Sex: Female
  Weight: 45.351 kg

DRUGS (1)
  1. YAZ [Suspect]
     Indication: PRODUCT USED FOR UNKNOWN INDICATION
     Route: 048
     Dates: start: 20070101, end: 20081201

REACTIONS (4)
  - BILIARY COLIC [None]
  - GALLBLADDER DISORDER [None]
  - ABDOMINAL DISCOMFORT [None]
  - DYSPEPSIA [None]
